FAERS Safety Report 16658866 (Version 1)
Quarter: 2019Q3

REPORT INFORMATION
  Report Type: Spontaneous
  Country: FR (occurrence: FR)
  Receive Date: 20190801
  Receipt Date: 20190801
  Transmission Date: 20191004
  Serious: Yes (Other)
  Sender: FDA-Public Use
  Company Number: PHHY2019FR178175

PATIENT
  Age: 93 Year
  Sex: Female
  Weight: 67.6 kg

DRUGS (1)
  1. PREDNISONE. [Suspect]
     Active Substance: PREDNISONE
     Indication: TEMPORAL ARTERITIS
     Dosage: 3 MG, QD
     Route: 048
     Dates: start: 2002

REACTIONS (1)
  - Osteoporotic fracture [Not Recovered/Not Resolved]
